FAERS Safety Report 17398741 (Version 1)
Quarter: 2020Q1

REPORT INFORMATION
  Report Type: Spontaneous
  Country: US (occurrence: US)
  Receive Date: 20200210
  Receipt Date: 20200210
  Transmission Date: 20200409
  Serious: No
  Sender: FDA-Public Use
  Company Number: US-VAYAPHARMA-2019-US-002372

PATIENT
  Age: 13 Year
  Sex: Female
  Weight: 54.43 kg

DRUGS (1)
  1. VAYARIN PLUS [Suspect]
     Active Substance: DOCONEXENT\ICOSAPENT\PHOSPHATIDYL SERINE
     Indication: ATTENTION DEFICIT/HYPERACTIVITY DISORDER
     Dosage: TOTAL OF 3 DOSES
     Route: 048
     Dates: start: 20190129, end: 20190202

REACTIONS (2)
  - Emotional disorder [Recovered/Resolved]
  - Aggression [Recovered/Resolved]

NARRATIVE: CASE EVENT DATE: 20190129
